FAERS Safety Report 15264737 (Version 2)
Quarter: 2018Q3

REPORT INFORMATION
  Report Type: Spontaneous
  Country: US (occurrence: US)
  Receive Date: 20180810
  Receipt Date: 20180814
  Transmission Date: 20181010
  Serious: No
  Sender: FDA-Public Use
  Company Number: US-PFIZER INC-2018316965

PATIENT
  Age: 89 Year
  Sex: Female
  Weight: 61.22 kg

DRUGS (3)
  1. COLESTIPOL HCL [Suspect]
     Active Substance: COLESTIPOL HYDROCHLORIDE
     Indication: DIARRHOEA
     Dosage: 1 G, DAILY
     Route: 048
     Dates: start: 20180802
  2. COLESTIPOL HCL [Suspect]
     Active Substance: COLESTIPOL HYDROCHLORIDE
     Dosage: HALF TABLET (DF)DAILY
     Dates: start: 201808
  3. COLESTIPOL HCL [Suspect]
     Active Substance: COLESTIPOL HYDROCHLORIDE
     Dosage: ALTERNATE DAY(TAKES ONE HALF TABLET EVERY OTHER DAY4 TABLETS SO FAR IN 8 DAYS)
     Dates: start: 20180804

REACTIONS (7)
  - Drug prescribing error [Unknown]
  - Product use complaint [Unknown]
  - Dysphagia [Unknown]
  - Product use in unapproved indication [Unknown]
  - Foreign body in respiratory tract [Unknown]
  - Product size issue [Unknown]
  - Intentional product misuse [Unknown]

NARRATIVE: CASE EVENT DATE: 201808
